FAERS Safety Report 5622800-2 (Version None)
Quarter: 2008Q1

REPORT INFORMATION
  Report Type: 
  Country: None (occurrence: None)
  Receive Date: 20080212
  Receipt Date: 20080118
  Transmission Date: 20080703
  Serious: Yes (Other)
  Sender: FDA-Public Use
  Company Number: US-BAYER-200715007NA

PATIENT
  Age: 52 Year
  Sex: Female
  Weight: 54 kg

DRUGS (2)
  1. CLIMARA [Suspect]
     Indication: MENOPAUSAL SYMPTOMS
     Route: 062
     Dates: start: 20000101, end: 20071114
  2. PROTONIX [Concomitant]

REACTIONS (3)
  - ABDOMINAL DISCOMFORT [None]
  - CHOLELITHIASIS [None]
  - HEPATIC STEATOSIS [None]
